FAERS Safety Report 9549039 (Version 1)
Quarter: 2013Q3

REPORT INFORMATION
  Report Type: Spontaneous
  Country: US (occurrence: None)
  Receive Date: 20130724
  Receipt Date: 20130724
  Transmission Date: 20140515
  Serious: Yes (Other)
  Sender: FDA-Public Use
  Company Number: PHEH2013US000984

PATIENT
  Age: 38 Year
  Sex: Female
  Weight: 52.2 kg

DRUGS (1)
  1. FANAPT [Suspect]
     Indication: SCHIZOPHRENIA
     Route: 048
     Dates: start: 20121219, end: 20121230

REACTIONS (5)
  - Hypersensitivity [None]
  - Swollen tongue [None]
  - Plicated tongue [None]
  - Tongue discolouration [None]
  - Oropharyngeal pain [None]
